FAERS Safety Report 5275405-X (Version None)
Quarter: 2007Q1

REPORT INFORMATION
  Report Type: 
  Country: None (occurrence: None)
  Receive Date: 20070322
  Receipt Date: 20070322
  Transmission Date: 20070707
  Serious: Yes (Hospitalization)
  Sender: FDA-Public Use
  Company Number: None

PATIENT
  Age: 48 Year
  Sex: Female
  Weight: 64.2 kg

DRUGS (1)
  1. PHENYTOIN [Suspect]
     Dosage: 200MG BID ORAL
     Route: 048

REACTIONS (3)
  - MALAISE [None]
  - SOMNOLENCE [None]
  - VOMITING [None]
